FAERS Safety Report 7521595-5 (Version None)
Quarter: 2011Q2

REPORT INFORMATION
  Report Type: 
  Country: None (occurrence: None)
  Receive Date: 20110603
  Receipt Date: 20110601
  Transmission Date: 20111010
  Serious: No
  Sender: FDA-Public Use
  Company Number: US-PFIZER INC-2011012231

PATIENT
  Sex: Female

DRUGS (2)
  1. EFFEXOR XR [Suspect]
     Dosage: 225 MG, 1X/DAY
     Dates: start: 20070101
  2. VENLAFAXINE HCL [Suspect]
     Dosage: 225 MG, 1X/DAY

REACTIONS (4)
  - DRY EYE [None]
  - ALOPECIA [None]
  - DRY MOUTH [None]
  - SLEEP DISORDER [None]
